FAERS Safety Report 6216622-1 (Version None)
Quarter: 2009Q2

REPORT INFORMATION
  Report Type: 
  Country: None (occurrence: None)
  Receive Date: 20090605
  Receipt Date: 20090602
  Transmission Date: 20091009
  Serious: Yes (Death)
  Sender: FDA-Public Use
  Company Number: PHEH2009US05663

PATIENT
  Age: 36 Year
  Sex: Female
  Weight: 91 kg

DRUGS (1)
  1. EXJADE [Suspect]
     Indication: HODGKIN'S DISEASE
     Dosage: 6250 MG, QD
     Route: 048

REACTIONS (1)
  - HODGKIN'S DISEASE RECURRENT [None]
